FAERS Safety Report 5471891-0 (Version None)
Quarter: 2007Q3

REPORT INFORMATION
  Report Type: 
  Country: None (occurrence: None)
  Receive Date: 20070928
  Receipt Date: 20070727
  Transmission Date: 20080115
  Serious: No
  Sender: FDA-Public Use
  Company Number: US-BRISTOL-MYERS SQUIBB COMPANY-13860150

PATIENT
  Sex: Male
  Weight: 93 kg

DRUGS (12)
  1. DEFINITY [Suspect]
     Indication: ECHOCARDIOGRAM
     Route: 042
     Dates: start: 20070605, end: 20070605
  2. AMIODARONE HCL [Concomitant]
  3. ALLOPURINOL [Concomitant]
  4. GLYBURIDE [Concomitant]
  5. COUMADIN [Concomitant]
  6. TOPROL-XL [Concomitant]
  7. ASPIRIN [Concomitant]
  8. LASIX [Concomitant]
  9. POTASSIUM CHLORIDE [Concomitant]
  10. ATACAND [Concomitant]
  11. ZOCOR [Concomitant]
  12. PROTONIX [Concomitant]

REACTIONS (2)
  - DYSKINESIA [None]
  - PAIN [None]
